FAERS Safety Report 10258053 (Version 1)
Quarter: 2014Q2

REPORT INFORMATION
  Report Type: Spontaneous
  Country: US (occurrence: US)
  Receive Date: 20140625
  Receipt Date: 20140625
  Transmission Date: 20141212
  Serious: No
  Sender: FDA-Public Use
  Company Number: US-PFIZER INC-2014171929

PATIENT
  Age: 65 Year
  Sex: Female
  Weight: 63.9 kg

DRUGS (1)
  1. PREMARIN [Suspect]
     Indication: OESTROGEN REPLACEMENT THERAPY
     Dosage: UNK, 3X/WEEK
     Route: 067
     Dates: start: 201405, end: 201406

REACTIONS (3)
  - Vulvovaginal pruritus [Not Recovered/Not Resolved]
  - Vulvovaginal pain [Not Recovered/Not Resolved]
  - Blood glucose increased [Not Recovered/Not Resolved]
